FAERS Safety Report 8399671-7 (Version None)
Quarter: 2012Q2

REPORT INFORMATION
  Report Type: 
  Country: None (occurrence: None)
  Receive Date: 20120531
  Receipt Date: 20120523
  Transmission Date: 20120825
  Serious: Yes (Other)
  Sender: FDA-Public Use
  Company Number: FR-UCBSA-055852

PATIENT
  Age: 59 Year
  Sex: Female
  Weight: 68 kg

DRUGS (11)
  1. FLUDROCORTISONE ACETATE [Concomitant]
  2. VIMPAT [Suspect]
     Route: 048
     Dates: start: 20120309, end: 20120403
  3. ACETAMINOPHEN [Concomitant]
  4. NICARDIPINE HYDROCHLORIDE [Concomitant]
  5. PHENYTOIN SODIUM [Interacting]
     Dates: start: 20120126, end: 20120308
  6. POTASSIUM CHLORIDE [Concomitant]
  7. LEVOTHYROXINE SODIUM [Concomitant]
  8. HUMIRA [Concomitant]
  9. LOVENOX [Concomitant]
  10. LEUCOVORIN CALCIUM [Concomitant]
  11. TEGRETOL [Interacting]
     Route: 048
     Dates: start: 20120229, end: 20120401

REACTIONS (6)
  - DRUG INTERACTION [None]
  - EOSINOPHILIA [None]
  - RASH MACULO-PAPULAR [None]
  - INAPPROPRIATE SCHEDULE OF DRUG ADMINISTRATION [None]
  - ERYTHEMA [None]
  - TOXIC SKIN ERUPTION [None]
